FAERS Safety Report 8524851-7 (Version None)
Quarter: 2012Q3

REPORT INFORMATION
  Report Type: 
  Country: None (occurrence: None)
  Receive Date: 20120720
  Receipt Date: 20120718
  Transmission Date: 20120928
  Serious: No
  Sender: FDA-Public Use
  Company Number: US-TEVA-349336USA

PATIENT
  Sex: Female

DRUGS (2)
  1. IRON [Concomitant]
     Indication: ANAEMIA
     Route: 048
  2. PLAN B ONE-STEP [Suspect]
     Indication: POST COITAL CONTRACEPTION
     Dosage: 1.5 MILLIGRAM;
     Route: 048
     Dates: start: 20120716, end: 20120716

REACTIONS (1)
  - NAUSEA [None]
